FAERS Safety Report 4972583-4 (Version None)
Quarter: 2006Q2

REPORT INFORMATION
  Report Type: 
  Country: None (occurrence: None)
  Receive Date: 20060413
  Receipt Date: 20051121
  Transmission Date: 20061013
  Serious: Yes (Hospitalization, Disabling)
  Sender: FDA-Public Use
  Company Number: US-MERCK-0511USA03617

PATIENT
  Age: 55 Year
  Sex: Male
  Weight: 123 kg

DRUGS (1)
  1. VIOXX [Suspect]
     Indication: ARTHRITIS
     Route: 048
     Dates: start: 20040501, end: 20040901

REACTIONS (3)
  - ARTHROPATHY [None]
  - HYPERTENSION [None]
  - MYOCARDIAL INFARCTION [None]
